FAERS Safety Report 9163252 (Version 2)
Quarter: 2014Q3

REPORT INFORMATION
  Report Type: Spontaneous
  Country: US (occurrence: US)
  Receive Date: 20130314
  Receipt Date: 20140820
  Transmission Date: 20150326
  Serious: Yes (Hospitalization)
  Sender: FDA-Public Use
  Company Number: US-BAYER-2013-028970

PATIENT
  Age: 42 Year
  Sex: Female
  Weight: 71.97 kg

DRUGS (9)
  1. YAZ [Suspect]
     Active Substance: DROSPIRENONE\ETHINYL ESTRADIOL
     Dosage: UNK
     Dates: start: 20090107
  2. ENABLEX [Concomitant]
     Active Substance: DARIFENACIN\DARIFENACIN HYDROBROMIDE
  3. ASCORBIC ACID. [Concomitant]
     Active Substance: ASCORBIC ACID
  4. FISH OIL [Concomitant]
     Active Substance: FISH OIL
  5. MULTIVITAMINS AND IRON [Concomitant]
  6. CALCIUM W/MAGNESIUM/ZINC [Concomitant]
  7. VITAMIN C [Concomitant]
     Active Substance: ASCORBIC ACID
     Dosage: 1000 MG, QD
  8. YASMIN [Suspect]
     Active Substance: DROSPIRENONE\ETHINYL ESTRADIOL
  9. CRANBERRY. [Concomitant]
     Active Substance: CRANBERRY

REACTIONS (1)
  - Acute myocardial infarction [Recovering/Resolving]

NARRATIVE: CASE EVENT DATE: 20090425
